FAERS Safety Report 6143636-2 (Version None)
Quarter: 2009Q2

REPORT INFORMATION
  Report Type: 
  Country: None (occurrence: None)
  Receive Date: 20090403
  Receipt Date: 20090324
  Transmission Date: 20091009
  Serious: Yes (Hospitalization, Other)
  Sender: FDA-Public Use
  Company Number: US-AMGEN-US320865

PATIENT
  Sex: Male
  Weight: 108.1 kg

DRUGS (8)
  1. NPLATE [Suspect]
     Indication: IDIOPATHIC THROMBOCYTOPENIC PURPURA
     Route: 058
     Dates: start: 20081009, end: 20081113
  2. COREG [Concomitant]
     Route: 048
  3. SPIRONOLACTONE W/ HYDROCHLOROTHIAZIDE [Concomitant]
     Route: 048
  4. ASPIRIN [Concomitant]
     Route: 048
  5. ASCORBIC ACID [Concomitant]
  6. VYTORIN [Concomitant]
     Route: 048
  7. FINASTERIDE [Concomitant]
  8. VITAMIN D [Concomitant]
     Route: 048

REACTIONS (5)
  - ANGINA PECTORIS [None]
  - BILIARY DYSKINESIA [None]
  - GLOMERULAR FILTRATION RATE DECREASED [None]
  - HELICOBACTER PYLORI IDENTIFICATION TEST POSITIVE [None]
  - POLYCYTHAEMIA [None]
